FAERS Safety Report 9335843 (Version 1)
Quarter: 2013Q2

REPORT INFORMATION
  Report Type: Spontaneous
  Country: US (occurrence: US)
  Receive Date: 20130606
  Receipt Date: 20130606
  Transmission Date: 20140414
  Serious: No
  Sender: FDA-Public Use
  Company Number: US-AMGEN-USASP2013029531

PATIENT
  Age: 72 Year
  Sex: Female

DRUGS (6)
  1. PROLIA [Suspect]
     Indication: OSTEOPOROSIS
     Dosage: UNK
     Dates: start: 201303
  2. CALCIUM [Concomitant]
  3. TRAVATAN Z [Concomitant]
  4. TYLENOL                            /00020001/ [Concomitant]
  5. RESTASIS [Concomitant]
     Dosage: UNK
     Dates: start: 201303, end: 2013
  6. SULFA                              /00076401/ [Concomitant]

REACTIONS (3)
  - Eye pruritus [Unknown]
  - Dry eye [Unknown]
  - Pruritus [Unknown]
